FAERS Safety Report 6717795-4 (Version None)
Quarter: 2010Q2

REPORT INFORMATION
  Report Type: 
  Country: None (occurrence: None)
  Receive Date: 20100510
  Receipt Date: 20100503
  Transmission Date: 20101027
  Serious: Yes (Other)
  Sender: FDA-Public Use
  Company Number: DE-PFIZER INC-2010055814

PATIENT

DRUGS (1)
  1. SORTIS [Suspect]
     Route: 048

REACTIONS (1)
  - TENDON DISORDER [None]
